FAERS Safety Report 4942909-6 (Version None)
Quarter: 2006Q1

REPORT INFORMATION
  Report Type: 
  Country: None (occurrence: None)
  Receive Date: 20060314
  Receipt Date: 20050729
  Transmission Date: 20060701
  Serious: Yes (Other)
  Sender: FDA-Public Use
  Company Number: 200512603FR

PATIENT
  Age: 45 Year
  Sex: Female

DRUGS (3)
  1. TAXOTERE [Suspect]
     Indication: BREAST CANCER METASTATIC
     Route: 042
     Dates: start: 20041130, end: 20041130
  2. TAXOTERE [Suspect]
     Route: 042
     Dates: start: 20041214, end: 20041214
  3. CAELYX [Suspect]
     Indication: BREAST CANCER METASTATIC
     Route: 042
     Dates: start: 20041130, end: 20041130

REACTIONS (1)
  - WEIGHT DECREASED [None]
